FAERS Safety Report 12345592 (Version 1)
Quarter: 2016Q2

REPORT INFORMATION
  Report Type: Spontaneous
  Country: US (occurrence: US)
  Receive Date: 20160509
  Receipt Date: 20160509
  Transmission Date: 20160815
  Serious: Yes (Other)
  Sender: FDA-Public Use
  Company Number: US-AMGEN-USASP2016056825

PATIENT
  Sex: Female

DRUGS (1)
  1. PROLIA [Suspect]
     Active Substance: DENOSUMAB
     Indication: PRODUCT USED FOR UNKNOWN INDICATION
     Dosage: UNK
     Route: 065
     Dates: start: 201511

REACTIONS (7)
  - Rheumatoid arthritis [Unknown]
  - Pruritus [Unknown]
  - Musculoskeletal pain [Unknown]
  - Feeling abnormal [Unknown]
  - Rash [Unknown]
  - Pollakiuria [Unknown]
  - Skin burning sensation [Unknown]
